FAERS Safety Report 21980453 (Version 5)
Quarter: 2024Q2

REPORT INFORMATION
  Report Type: Report from Study
  Country: US (occurrence: US)
  Receive Date: 20230211
  Receipt Date: 20240508
  Transmission Date: 20240716
  Serious: No
  Sender: FDA-Public Use
  Company Number: US-002147023-NVSC2023US023651

PATIENT
  Sex: Female

DRUGS (1)
  1. KESIMPTA [Suspect]
     Active Substance: OFATUMUMAB
     Indication: Product used for unknown indication
     Dosage: UNK
     Route: 065
     Dates: start: 20230104

REACTIONS (9)
  - Influenza [Unknown]
  - Illness [Recovered/Resolved]
  - Pain [Unknown]
  - Sneezing [Unknown]
  - Rhinorrhoea [Unknown]
  - Chills [Unknown]
  - Fatigue [Unknown]
  - Neck mass [Unknown]
  - Vertigo [Unknown]
